FAERS Safety Report 7776975-X (Version None)
Quarter: 2011Q3

REPORT INFORMATION
  Report Type: 
  Country: None (occurrence: None)
  Receive Date: 20110926
  Receipt Date: 20110919
  Transmission Date: 20111222
  Serious: Yes (Hospitalization)
  Sender: FDA-Public Use
  Company Number: FR-JNJFOC-20110400684

PATIENT
  Sex: Male
  Weight: 75 kg

DRUGS (21)
  1. PREDNISONE [Suspect]
     Route: 048
     Dates: start: 20110323
  2. LYRICA [Concomitant]
     Indication: NEURALGIA
     Route: 048
  3. LOVENOX [Concomitant]
     Indication: TRANSIENT ISCHAEMIC ATTACK
     Route: 058
     Dates: start: 20110331, end: 20110407
  4. ALLOPURINOL [Concomitant]
     Indication: GOUT
     Route: 048
     Dates: start: 19880101
  5. PLAVIX [Concomitant]
     Route: 048
     Dates: start: 20110408
  6. ATARAX [Concomitant]
     Indication: ANXIETY
     Route: 042
     Dates: start: 20110401, end: 20110405
  7. PRAVASTATIN [Concomitant]
     Indication: HYPERCHOLESTEROLAEMIA
     Route: 048
     Dates: start: 20080811
  8. SOLU-MEDROL [Concomitant]
     Indication: PRODUCT USED FOR UNKNOWN INDICATION
     Route: 042
     Dates: start: 20110331, end: 20110404
  9. ZOLADEX [Concomitant]
     Indication: PROSTATE CANCER
     Route: 058
     Dates: start: 20070725
  10. PREDNISONE [Suspect]
     Route: 048
     Dates: start: 20110422, end: 20110426
  11. NEXIUM [Concomitant]
     Indication: GASTROINTESTINAL DISORDER THERAPY
     Route: 048
     Dates: start: 20090607, end: 20110629
  12. PLAVIX [Concomitant]
     Indication: CEREBROVASCULAR ACCIDENT
     Route: 048
     Dates: start: 20060801, end: 20110330
  13. STABLON [Concomitant]
     Indication: DEPRESSION
     Route: 048
     Dates: start: 20020101
  14. ABIRATERONE [Suspect]
     Indication: PROSTATE CANCER
     Route: 048
     Dates: start: 20110408, end: 20110831
  15. ABIRATERONE [Suspect]
     Route: 048
     Dates: end: 20110404
  16. PREDNISONE [Suspect]
     Indication: PROSTATE CANCER
     Route: 048
     Dates: start: 20110427, end: 20110629
  17. PREDNISONE [Suspect]
     Route: 048
     Dates: start: 20110417, end: 20110421
  18. PREDNISONE [Suspect]
     Route: 048
     Dates: start: 20110407, end: 20110410
  19. PREDNISONE [Suspect]
     Route: 048
     Dates: start: 20110412, end: 20110416
  20. OXYCODONE HCL [Concomitant]
     Indication: MUSCULOSKELETAL PAIN
     Route: 048
     Dates: start: 20110405
  21. OXYCONTIN [Concomitant]
     Indication: MUSCULOSKELETAL PAIN
     Route: 048
     Dates: start: 20110405

REACTIONS (14)
  - INAPPROPRIATE SCHEDULE OF DRUG ADMINISTRATION [None]
  - PARAESTHESIA [None]
  - HYPONATRAEMIA [None]
  - ABDOMINAL PAIN [None]
  - INFECTION [None]
  - ASTHENIA [None]
  - DYSPNOEA [None]
  - CONSTIPATION [None]
  - BACK PAIN [None]
  - OEDEMA PERIPHERAL [None]
  - PAIN IN EXTREMITY [None]
  - PYREXIA [None]
  - WEIGHT INCREASED [None]
  - BONE PAIN [None]
